FAERS Safety Report 14528201 (Version 2)
Quarter: 2018Q1

REPORT INFORMATION
  Report Type: Report from Study
  Country: None (occurrence: US)
  Receive Date: 20180214
  Receipt Date: 20180326
  Transmission Date: 20180509
  Serious: Yes (Hospitalization, Other)
  Sender: FDA-Public Use
  Company Number: US-ABBVIE-18K-163-2254699-00

PATIENT
  Age: 56 Year
  Sex: Female
  Weight: 56.75 kg

DRUGS (2)
  1. HUMIRA [Suspect]
     Active Substance: ADALIMUMAB
     Indication: CROHN^S DISEASE
     Route: 058
     Dates: start: 2014, end: 2016
  2. HUMIRA [Suspect]
     Active Substance: ADALIMUMAB
     Route: 058
     Dates: start: 2016, end: 201801

REACTIONS (8)
  - Electrolyte imbalance [Recovered/Resolved]
  - Small intestinal obstruction [Recovered/Resolved]
  - Electrolyte depletion [Unknown]
  - Blood potassium decreased [Unknown]
  - Squamous cell carcinoma [Recovered/Resolved]
  - Injection site pain [Recovered/Resolved]
  - Gait inability [Recovered/Resolved]
  - Electrolyte imbalance [Recovered/Resolved]

NARRATIVE: CASE EVENT DATE: 2014
